FAERS Safety Report 19605214 (Version 2)
Quarter: 2021Q3

REPORT INFORMATION
  Report Type: Spontaneous
  Country: CA (occurrence: CA)
  Receive Date: 20210723
  Receipt Date: 20210730
  Transmission Date: 20211014
  Serious: Yes (Hospitalization)
  Sender: FDA-Public Use
  Company Number: CA-RIGEL PHARMACEUTICALS, INC.-2021FOS000462

PATIENT
  Sex: Male

DRUGS (1)
  1. TAVALISSE [Suspect]
     Active Substance: FOSTAMATINIB
     Indication: IMMUNE THROMBOCYTOPENIA
     Dosage: 100 MG, BID
     Route: 048
     Dates: start: 20210615, end: 20210627

REACTIONS (3)
  - Therapeutic product ineffective [Unknown]
  - Feeling abnormal [Unknown]
  - Haemoglobin decreased [Unknown]
